FAERS Safety Report 17370981 (Version 1)
Quarter: 2020Q1

REPORT INFORMATION
  Report Type: Spontaneous
  Country: NL (occurrence: NL)
  Receive Date: 20200205
  Receipt Date: 20200205
  Transmission Date: 20200409
  Serious: Yes (Congenital Anomaly, Other)
  Sender: FDA-Public Use
  Company Number: NL-MYLANLABS-2020M1012898

PATIENT
  Sex: Male
  Weight: 3 kg

DRUGS (3)
  1. LEVOTHYROXINE. [Concomitant]
     Active Substance: LEVOTHYROXINE
     Dosage: 1DD75MCG
  2. CITALOPRAM [Suspect]
     Active Substance: CITALOPRAM HYDROBROMIDE
     Indication: DEPRESSION
     Dosage: 1DD1
     Route: 064
  3. MELATONINE [Suspect]
     Active Substance: MELATONIN
     Indication: INSOMNIA
     Dosage: 1D0.5
     Route: 064

REACTIONS (4)
  - Congenital hepatomegaly [Recovered/Resolved]
  - Talipes [Not Recovered/Not Resolved]
  - Congenital hydronephrosis [Unknown]
  - Foetal exposure during pregnancy [Recovered/Resolved]
